FAERS Safety Report 19199774 (Version 4)
Quarter: 2022Q4

REPORT INFORMATION
  Report Type: Report from Study
  Country: SE (occurrence: SE)
  Receive Date: 20210429
  Receipt Date: 20221215
  Transmission Date: 20230112
  Serious: Yes (Other)
  Sender: FDA-Public Use
  Company Number: SE-ABBVIE-21K-150-3881413-00

PATIENT
  Sex: Male
  Weight: 61 kg

DRUGS (5)
  1. CARBIDOPA\LEVODOPA [Suspect]
     Active Substance: CARBIDOPA\LEVODOPA
     Indication: Parkinson^s disease
     Route: 050
     Dates: start: 20141014
  2. CARBIDOPA\LEVODOPA [Suspect]
     Active Substance: CARBIDOPA\LEVODOPA
     Dosage: MD: 4.5ML, CD DAY: 3.7ML/H, CD NIGHT: 2.3ML/H, ED: 2.5ML.
     Route: 050
     Dates: start: 20210428
  3. CARBIDOPA\LEVODOPA [Suspect]
     Active Substance: CARBIDOPA\LEVODOPA
     Dosage: CURRENT DOSAGE: CONTINUOUS DOSE 3.8 ML
     Dates: start: 20221123
  4. CARBIDOPA\LEVODOPA [Suspect]
     Active Substance: CARBIDOPA\LEVODOPA
     Dosage: CURRENT DOSAGE: CONTINUOUS DOSE 3.8 ML
     Route: 050
     Dates: start: 20221123
  5. CARBIDOPA\LEVODOPA [Suspect]
     Active Substance: CARBIDOPA\LEVODOPA
     Dosage: THERAPY DURATION: REMAINS AT 24H. CURRENT DOSAGE: EXTRA DOSE: 2.5ML
     Route: 050
     Dates: start: 20210428

REACTIONS (8)
  - Prostate cancer [Unknown]
  - Prostatic specific antigen increased [Recovering/Resolving]
  - Urine flow decreased [Not Recovered/Not Resolved]
  - Urinary tract disorder [Not Recovered/Not Resolved]
  - Gastric disorder [Not Recovered/Not Resolved]
  - Constipation [Not Recovered/Not Resolved]
  - Pollakiuria [Unknown]
  - Abdominal discomfort [Not Recovered/Not Resolved]

NARRATIVE: CASE EVENT DATE: 20200101
